FAERS Safety Report 19666041 (Version 2)
Quarter: 2021Q3

REPORT INFORMATION
  Report Type: Spontaneous
  Country: JP (occurrence: JP)
  Receive Date: 20210805
  Receipt Date: 20210825
  Transmission Date: 20211014
  Serious: Yes (Hospitalization)
  Sender: FDA-Public Use
  Company Number: JP-JNJFOC-20210807300

PATIENT
  Sex: Female

DRUGS (2)
  1. CANAGLIFLOZIN [Suspect]
     Active Substance: CANAGLIFLOZIN
     Indication: TYPE 2 DIABETES MELLITUS
     Dosage: 100 MILLIGRAM, QD
     Route: 048
     Dates: end: 20210723
  2. EUCREAS [Concomitant]
     Active Substance: METFORMIN HYDROCHLORIDE\VILDAGLIPTIN
     Route: 065

REACTIONS (2)
  - Diabetic ketoacidosis [Recovering/Resolving]
  - Biliary colic [Recovering/Resolving]

NARRATIVE: CASE EVENT DATE: 20210722
